FAERS Safety Report 4569017-0 (Version None)
Quarter: 2005Q1

REPORT INFORMATION
  Report Type: 
  Country: None (occurrence: None)
  Receive Date: 20050203
  Receipt Date: 20050104
  Transmission Date: 20050727
  Serious: Yes (Hospitalization)
  Sender: FDA-Public Use
  Company Number: 200510045FR

PATIENT
  Age: 56 Year
  Sex: Female

DRUGS (5)
  1. FLAGYL [Suspect]
     Indication: MYOFASCITIS
     Route: 048
     Dates: start: 20040810, end: 20040812
  2. PYOSTACINE [Suspect]
     Indication: SUPERINFECTION
     Route: 048
     Dates: start: 20040705, end: 20040805
  3. OFLOCET [Suspect]
     Indication: MYOFASCITIS
     Route: 048
     Dates: start: 20040810, end: 20040812
  4. DALACINE [Suspect]
     Indication: SUPERINFECTION
     Route: 048
     Dates: start: 20040805, end: 20040810
  5. AUGMENTIN [Suspect]
     Route: 048

REACTIONS (12)
  - ARTHROPOD BITE [None]
  - DERMATITIS BULLOUS [None]
  - ERYTHEMA [None]
  - HYPERTHERMIA [None]
  - MYOFASCITIS [None]
  - NIKOLSKY'S SIGN [None]
  - PRURITUS [None]
  - RASH [None]
  - RASH MACULO-PAPULAR [None]
  - SKIN NECROSIS [None]
  - SUPERINFECTION [None]
  - TOXIC SKIN ERUPTION [None]
